FAERS Safety Report 7771442-1 (Version None)
Quarter: 2011Q3

REPORT INFORMATION
  Report Type: 
  Country: None (occurrence: None)
  Receive Date: 20110922
  Receipt Date: 20110511
  Transmission Date: 20111222
  Serious: No
  Sender: FDA-Public Use
  Company Number: US-ASTRAZENECA-2011SE28677

PATIENT
  Sex: Female
  Weight: 77.1 kg

DRUGS (4)
  1. CALCIUM SUPPLEMENTS [Concomitant]
  2. SEROQUEL XR [Suspect]
     Dosage: 50 MG TWICE A WEEK APART
     Route: 048
     Dates: start: 20110101
  3. SYNTHROID [Concomitant]
  4. MULTI-VITAMIN [Concomitant]

REACTIONS (12)
  - FEELING HOT [None]
  - CHROMATURIA [None]
  - INCORRECT DOSE ADMINISTERED [None]
  - OFF LABEL USE [None]
  - BALANCE DISORDER [None]
  - NASAL DRYNESS [None]
  - LIP DRY [None]
  - UNEVALUABLE EVENT [None]
  - FEELING ABNORMAL [None]
  - SINUSITIS [None]
  - TOOTHACHE [None]
  - URINE OUTPUT DECREASED [None]
